FAERS Safety Report 4721077-X (Version None)
Quarter: 2005Q3

REPORT INFORMATION
  Report Type: 
  Country: None (occurrence: None)
  Receive Date: 20050719
  Receipt Date: 20041203
  Transmission Date: 20060218
  Serious: Yes (Hospitalization, Other)
  Sender: FDA-Public Use
  Company Number: 2004090199

PATIENT
  Age: 89 Year
  Sex: Male
  Weight: 61.2356 kg

DRUGS (3)
  1. CELEBREX [Suspect]
     Indication: ARTHRITIS
     Dosage: 200 MG (200 MG,1 IN 1 D), ORAL
     Route: 048
  2. BICALUTAMIDE (BICALUTAMIDE) [Concomitant]
  3. LISINOPRIL [Concomitant]

REACTIONS (4)
  - ABDOMINAL PAIN LOWER [None]
  - CYSTITIS [None]
  - PAIN [None]
  - URINARY RETENTION [None]
